FAERS Safety Report 18974889 (Version 2)
Quarter: 2021Q3

REPORT INFORMATION
  Report Type: Spontaneous
  Country: DE (occurrence: DE)
  Receive Date: 20210305
  Receipt Date: 20210701
  Transmission Date: 20211014
  Serious: Yes (Other)
  Sender: FDA-Public Use
  Company Number: NVSC2021DE050495

PATIENT
  Age: 72 Year
  Sex: Female
  Weight: 67 kg

DRUGS (2)
  1. TASIGNA [Suspect]
     Active Substance: NILOTINIB
     Indication: PRODUCT USED FOR UNKNOWN INDICATION
     Dosage: 600 MG, QD
     Route: 065
     Dates: start: 20210125, end: 2021
  2. TASIGNA [Suspect]
     Active Substance: NILOTINIB
     Dosage: 600 MG, QD
     Route: 065
     Dates: start: 2021

REACTIONS (11)
  - Anxiety [Recovering/Resolving]
  - Depression [Recovered/Resolved]
  - Gamma-glutamyltransferase increased [Unknown]
  - Monocyte count decreased [Recovered/Resolved]
  - Red cell distribution width increased [Unknown]
  - Alanine aminotransferase increased [Unknown]
  - Phobia of driving [Recovered/Resolved]
  - Blood bilirubin increased [Unknown]
  - Nervousness [Recovering/Resolving]
  - Autophobia [Recovering/Resolving]
  - Photopsia [Recovering/Resolving]

NARRATIVE: CASE EVENT DATE: 20210213
